FAERS Safety Report 4764530-5 (Version None)
Quarter: 2005Q3

REPORT INFORMATION
  Report Type: 
  Country: None (occurrence: None)
  Receive Date: 20050906
  Receipt Date: 20050823
  Transmission Date: 20060218
  Serious: Yes (Other)
  Sender: FDA-Public Use
  Company Number: USA0508106239

PATIENT
  Age: 73 Year
  Sex: Female

DRUGS (1)
  1. HUMULIN 70/30 [Suspect]
     Indication: DIABETES MELLITUS

REACTIONS (7)
  - ADRENAL CARCINOMA [None]
  - ARTHRITIS [None]
  - PAIN [None]
  - RENAL CELL CARCINOMA STAGE UNSPECIFIED [None]
  - ROAD TRAFFIC ACCIDENT [None]
  - SKIN GRAFT [None]
  - TOE AMPUTATION [None]
